FAERS Safety Report 11845942 (Version 1)
Quarter: 2015Q4

REPORT INFORMATION
  Report Type: Spontaneous
  Country: US (occurrence: US)
  Receive Date: 20151217
  Receipt Date: 20151217
  Transmission Date: 20160305
  Serious: No
  Sender: FDA-Public Use
  Company Number: US-ELI_LILLY_AND_COMPANY-US201512004699

PATIENT
  Age: 70 Year
  Sex: Male

DRUGS (2)
  1. HUMALOG MIX25 [Concomitant]
     Indication: TYPE 2 DIABETES MELLITUS
     Dosage: 60 U, BID
  2. TRULICITY [Suspect]
     Active Substance: DULAGLUTIDE
     Indication: TYPE 2 DIABETES MELLITUS
     Dosage: 0.75 MG, UNK
     Route: 065

REACTIONS (1)
  - Diarrhoea [Unknown]
